FAERS Safety Report 8069031-7 (Version None)
Quarter: 2012Q1

REPORT INFORMATION
  Report Type: 
  Country: None (occurrence: None)
  Receive Date: 20120125
  Receipt Date: 20120117
  Transmission Date: 20120608
  Serious: Yes (Hospitalization)
  Sender: FDA-Public Use
  Company Number: GB-TEVA-318649ISR

PATIENT
  Sex: Male

DRUGS (11)
  1. PREDNISOLONE [Suspect]
     Indication: PROSTATE CANCER METASTATIC
     Dosage: 10 MILLIGRAM;
  2. OMEPRAZOLE [Concomitant]
     Indication: PROPHYLAXIS
     Dosage: 20 MILLIGRAM;
  3. NOVOLOG MIX 70/30 [Concomitant]
     Indication: DIABETES MELLITUS
     Dosage: 50 MILLIGRAM;
  4. AMLODIPINE [Concomitant]
     Indication: MYOCARDIAL ISCHAEMIA
     Dosage: 5 MILLIGRAM;
  5. METFORMIN HCL [Concomitant]
     Indication: DIABETES MELLITUS
     Dosage: 2550 MILLIGRAM;
  6. ACETAMINOPHEN [Concomitant]
     Indication: PROSTATE CANCER METASTATIC
  7. DOXAZOSIN MESYLATE [Concomitant]
     Indication: MYOCARDIAL ISCHAEMIA
     Dosage: 1 MILLIGRAM;
  8. RAMIPRIL [Concomitant]
     Indication: MYOCARDIAL ISCHAEMIA
     Dosage: 10 MILLIGRAM;
  9. ATORVASTATIN [Concomitant]
     Indication: MYOCARDIAL ISCHAEMIA
  10. ATORVASTATIN [Concomitant]
     Indication: BLOOD CHOLESTEROL
     Dosage: 40 MILLIGRAM;
  11. ABIRATERONE (ABIRATERONE ACETATE) [Suspect]
     Indication: PROSTATE CANCER METASTATIC
     Dosage: 1000 MILLIGRAM;
     Route: 048
     Dates: start: 20110509

REACTIONS (1)
  - NEPHROLITHIASIS [None]
